FAERS Safety Report 10337891 (Version 2)
Quarter: 2014Q3

REPORT INFORMATION
  Report Type: Spontaneous
  Country: US (occurrence: US)
  Receive Date: 20140724
  Receipt Date: 20140724
  Transmission Date: 20150326
  Serious: No
  Sender: FDA-Public Use
  Company Number: US-UNITED THERAPEUTICS-UTC-044946

PATIENT
  Sex: Female
  Weight: 68.94 kg

DRUGS (1)
  1. TYVASO [Suspect]
     Active Substance: TREPROSTINIL
     Dosage: 18-54 MICROGRAMS
     Dates: start: 20140204

REACTIONS (12)
  - Hyperhidrosis [Unknown]
  - Cough [Not Recovered/Not Resolved]
  - Flushing [Unknown]
  - Productive cough [Unknown]
  - Nasal congestion [Unknown]
  - Miliaria [Unknown]
  - Raynaud^s phenomenon [Unknown]
  - Seasonal allergy [Unknown]
  - Sinusitis [Unknown]
  - Rhinorrhoea [Unknown]
  - Cyanosis [Unknown]
  - Oxygen saturation decreased [Unknown]

NARRATIVE: CASE EVENT DATE: 2014
